FAERS Safety Report 14523286 (Version 1)
Quarter: 2018Q1

REPORT INFORMATION
  Report Type: Spontaneous
  Country: US (occurrence: US)
  Receive Date: 20180212
  Receipt Date: 20180212
  Transmission Date: 20180509
  Serious: No
  Sender: FDA-Public Use
  Company Number: US-AMAG PHARMACEUTICALS, INC.-AMAG201701772

PATIENT

DRUGS (3)
  1. SYNTHROID [Concomitant]
     Active Substance: LEVOTHYROXINE SODIUM
     Indication: HYPOTHYROIDISM
     Dosage: 112 MCG/DL, UNK
     Route: 065
  2. PRENATAL VITAMINS [Concomitant]
     Active Substance: VITAMINS
     Indication: SUPPLEMENTATION THERAPY
     Dosage: UNK, QD
     Route: 048
  3. MAKENA [Suspect]
     Active Substance: HYDROXYPROGESTERONE CAPROATE
     Indication: PREMATURE DELIVERY
     Dosage: UNK
     Route: 065
     Dates: end: 201705

REACTIONS (8)
  - Injection site vesicles [Recovered/Resolved]
  - Rash macular [Recovered/Resolved with Sequelae]
  - Balance disorder [Recovered/Resolved]
  - Injection site pruritus [Recovered/Resolved]
  - Injection site erythema [Recovered/Resolved]
  - Injection site discomfort [Recovered/Resolved]
  - Injection site swelling [Recovered/Resolved]
  - Cholestasis of pregnancy [Recovered/Resolved]

NARRATIVE: CASE EVENT DATE: 20170512
